FAERS Safety Report 7403333-X (Version None)
Quarter: 2011Q2

REPORT INFORMATION
  Report Type: 
  Country: None (occurrence: None)
  Receive Date: 20110408
  Receipt Date: 20110329
  Transmission Date: 20111010
  Serious: Yes (Life-Threatening, Hospitalization, Other)
  Sender: FDA-Public Use
  Company Number: US-AMGEN-US247384

PATIENT
  Age: 41 Year
  Sex: Female
  Weight: 78.095 kg

DRUGS (10)
  1. PROCRIT [Suspect]
     Indication: RENAL FAILURE CHRONIC
     Dosage: 20000 IU, 3 TIMES/WK
     Route: 058
     Dates: start: 20070323, end: 20070925
  2. MULTIVITAMINS AND IRON [Concomitant]
     Dosage: UNK UNK, QD
  3. LOSARTAN POTASSIUM [Concomitant]
     Dosage: 50 MG, QD
     Route: 048
  4. CALCITRIOL [Concomitant]
     Dosage: .25 A?G, QD
     Route: 048
  5. FEXOFENADINE HCL [Concomitant]
     Dosage: 60 MG, PRN
  6. PREDNISONE [Concomitant]
  7. CYCLOPHOSPHAMIDE [Concomitant]
     Dosage: UNK UNK, UNK
     Dates: end: 20080101
  8. DEXTRIFERRON [Concomitant]
     Dosage: 150 MG, QD
     Route: 048
  9. ECHINACEA EXTRACT [Concomitant]
     Dosage: UNK UNK, QD
     Route: 048
  10. IMMUNOGLOBULINS [Concomitant]
     Dosage: UNK UNK, UNK
     Route: 042

REACTIONS (5)
  - BLOOD IRON INCREASED [None]
  - RENAL IMPAIRMENT [None]
  - ANTI-ERYTHROPOIETIN ANTIBODY POSITIVE [None]
  - APLASIA PURE RED CELL [None]
  - NEUTRALISING ANTIBODIES POSITIVE [None]
